FAERS Safety Report 23737888 (Version 1)
Quarter: 2024Q2

REPORT INFORMATION
  Report Type: Spontaneous
  Country: US (occurrence: None)
  Receive Date: 20240412
  Receipt Date: 20240412
  Transmission Date: 20240715
  Serious: No
  Sender: FDA-Public Use
  Company Number: None

PATIENT
  Age: 83 Year
  Sex: Female
  Weight: 59.4 kg

DRUGS (3)
  1. GAMMAKED [Suspect]
     Active Substance: HUMAN IMMUNOGLOBULIN G
     Indication: Myasthenia gravis
     Dosage: 20 G GRAM(S)  DAILY FOR 3 DAYS  INTRAVENOUS DRIP?
     Route: 041
     Dates: start: 20231117
  2. TYLENOL 650MG [Concomitant]
     Dates: start: 20231117
  3. BENADRYL 50MG [Concomitant]
     Dates: start: 20231117

REACTIONS (2)
  - Blood pressure increased [None]
  - Infusion related reaction [None]
